FAERS Safety Report 25426954 (Version 3)
Quarter: 2025Q3

REPORT INFORMATION
  Report Type: Report from Study
  Country: US (occurrence: None)
  Receive Date: 20250612
  Receipt Date: 20250704
  Transmission Date: 20251021
  Serious: Yes (Congenital Anomaly, Other)
  Sender: AXSOME THERAPEUTICS, INC.
  Company Number: US-Axsome Therapeutics, Inc.-AXS202506-000964

PATIENT
  Age: 18 Day
  Sex: Male

DRUGS (1)
  1. SUNOSI [Suspect]
     Active Substance: SOLRIAMFETOL
     Indication: Product used for unknown indication
     Route: 064

REACTIONS (2)
  - Pyloric stenosis [Recovered/Resolved]
  - Foetal exposure during pregnancy [Recovered/Resolved]

NARRATIVE: CASE EVENT DATE: 20250117
